FAERS Safety Report 7588717-1 (Version None)
Quarter: 2011Q3

REPORT INFORMATION
  Report Type: 
  Country: None (occurrence: None)
  Receive Date: 20110705
  Receipt Date: 20110610
  Transmission Date: 20111222
  Serious: Yes (Other)
  Sender: FDA-Public Use
  Company Number: US-BAYER-2011-024502

PATIENT
  Age: 24 Year
  Sex: Female
  Weight: 66 kg

DRUGS (5)
  1. YAZ [Suspect]
     Indication: CONTRACEPTION
  2. FERROUS SULFATE TAB [Concomitant]
     Indication: SUPPLEMENTATION THERAPY
  3. SERTRALINE HYDROCHLORIDE [Concomitant]
  4. ACETAMINOPHEN [Concomitant]
     Indication: PAIN
  5. YAZ [Suspect]
     Indication: PREMENSTRUAL SYNDROME
     Dosage: 1 TAB/ DAY
     Dates: start: 20070101, end: 20100101

REACTIONS (5)
  - DYSPEPSIA [None]
  - PAIN [None]
  - GALLBLADDER DISORDER [None]
  - INJURY [None]
  - CHOLECYSTITIS CHRONIC [None]
